FAERS Safety Report 11743019 (Version 1)
Quarter: 2015Q4

REPORT INFORMATION
  Report Type: Spontaneous
  Country: AR (occurrence: AR)
  Receive Date: 20151116
  Receipt Date: 20151116
  Transmission Date: 20160304
  Serious: Yes (Other)
  Sender: FDA-Public Use
  Company Number: AR-PFIZER INC-2015373934

PATIENT
  Age: 69 Year
  Sex: Female

DRUGS (2)
  1. SUTENT [Suspect]
     Active Substance: SUNITINIB MALATE
     Indication: METASTATIC RENAL CELL CARCINOMA
     Dosage: 37.5 MG, CYCLIC (28 DAYS ON, 14 DAYS OFF)
     Dates: start: 20141027
  2. SUTENT [Suspect]
     Active Substance: SUNITINIB MALATE
     Dosage: 12,5 MG (28 DAYS ON), FOLLOWED BY 25MG (28 DAYS ON), THEN REST FOR 14 DAYS, CYCLIC

REACTIONS (6)
  - Confusional state [Unknown]
  - Abasia [Recovered/Resolved]
  - Swelling [Recovered/Resolved]
  - Feeling abnormal [Recovered/Resolved]
  - Peripheral swelling [Recovered/Resolved]
  - Speech disorder [Unknown]

NARRATIVE: CASE EVENT DATE: 2014
